FAERS Safety Report 17116896 (Version 1)
Quarter: 2019Q4

REPORT INFORMATION
  Report Type: Spontaneous
  Country: FR (occurrence: FR)
  Receive Date: 20191205
  Receipt Date: 20191205
  Transmission Date: 20200122
  Serious: Yes (Death)
  Sender: FDA-Public Use
  Company Number: FR-MYLANLABS-2019M1118819

PATIENT
  Age: 87 Year
  Sex: Male

DRUGS (1)
  1. CIPROFLOXACIN. [Suspect]
     Active Substance: CIPROFLOXACIN
     Indication: CHRONIC OBSTRUCTIVE PULMONARY DISEASE
     Dosage: 1000 MILLIGRAM, QD
     Route: 048
     Dates: start: 20190102, end: 20190105

REACTIONS (1)
  - Pseudomembranous colitis [Fatal]

NARRATIVE: CASE EVENT DATE: 20190105
